FAERS Safety Report 17858401 (Version 2)
Quarter: 2020Q2

REPORT INFORMATION
  Report Type: Report from Study
  Country: None (occurrence: US)
  Receive Date: 20200604
  Receipt Date: 20200605
  Transmission Date: 20200714
  Serious: No
  Sender: FDA-Public Use
  Company Number: US-US WORLDMEDS, LLC-USW201908-001442

PATIENT
  Age: 49 Year
  Sex: Male

DRUGS (3)
  1. APOKYN [Suspect]
     Active Substance: APOMORPHINE HYDROCHLORIDE
     Indication: PARKINSON^S DISEASE
     Dosage: UNKNOWN
     Dates: start: 201712
  2. SINEMET [Concomitant]
     Active Substance: CARBIDOPA\LEVODOPA
  3. MIRAPEX [Concomitant]
     Active Substance: PRAMIPEXOLE DIHYDROCHLORIDE

REACTIONS (3)
  - Muscle spasms [Unknown]
  - Hyperhidrosis [Unknown]
  - Inappropriate schedule of product administration [Unknown]
